FAERS Safety Report 5914687-5 (Version None)
Quarter: 2008Q4

REPORT INFORMATION
  Report Type: 
  Country: None (occurrence: None)
  Receive Date: 20081010
  Receipt Date: 20080929
  Transmission Date: 20090506
  Serious: Yes (Disabling, Other)
  Sender: FDA-Public Use
  Company Number: FR-JNJFOC-20080900546

PATIENT
  Age: 19 Year
  Sex: Female

DRUGS (1)
  1. REMICADE [Suspect]
     Indication: CROHN'S DISEASE
     Route: 042

REACTIONS (7)
  - FOLLICULITIS [None]
  - RHINITIS [None]
  - SCAR [None]
  - SINUSITIS [None]
  - SKIN FISSURES [None]
  - SKIN PLAQUE [None]
  - STAPHYLOCOCCAL INFECTION [None]
